FAERS Safety Report 5342400-1 (Version None)
Quarter: 2007Q2

REPORT INFORMATION
  Report Type: 
  Country: None (occurrence: None)
  Receive Date: 20070601
  Receipt Date: 20070522
  Transmission Date: 20071010
  Serious: Yes (Hospitalization, Disabling)
  Sender: FDA-Public Use
  Company Number: IT-ROCHE-492570

PATIENT
  Age: 45 Year
  Sex: Female

DRUGS (4)
  1. MYCOPHENOLATE MOFETIL [Suspect]
     Route: 048
     Dates: start: 20061220
  2. FK506 [Suspect]
     Route: 048
     Dates: start: 20061220
  3. MEPRAL [Concomitant]
     Dates: start: 20061222
  4. ASPIRIN [Concomitant]
     Dates: start: 20061220

REACTIONS (1)
  - AUTOIMMUNE HEPATITIS [None]
